FAERS Safety Report 12896425 (Version 1)
Quarter: 2016Q4

REPORT INFORMATION
  Report Type: Spontaneous
  Country: US (occurrence: US)
  Receive Date: 20161031
  Receipt Date: 20161031
  Transmission Date: 20170207
  Serious: No
  Sender: FDA-Public Use
  Company Number: US-JAZZ-2016-US-016333

PATIENT
  Sex: Female

DRUGS (32)
  1. XYREM [Suspect]
     Active Substance: SODIUM OXYBATE
     Indication: NARCOLEPSY
     Dosage: 2.25 G, BID
     Route: 048
     Dates: start: 201601, end: 201602
  2. XYREM [Suspect]
     Active Substance: SODIUM OXYBATE
     Dosage: 4.5 G, BID
     Route: 048
     Dates: start: 201604
  3. CEFADROXIL. [Concomitant]
     Active Substance: CEFADROXIL
  4. FISH OIL [Concomitant]
     Active Substance: FISH OIL
  5. IRON [Concomitant]
     Active Substance: IRON
  6. OCUVITE [Concomitant]
     Active Substance: VITAMINS
  7. LINZESS [Concomitant]
     Active Substance: LINACLOTIDE
  8. MULTIVITAMINS [Concomitant]
     Active Substance: VITAMINS
  9. NIACIN. [Concomitant]
     Active Substance: NIACIN
  10. OMEPRAZOLE. [Concomitant]
     Active Substance: OMEPRAZOLE
  11. VITAMIN D3 [Concomitant]
     Active Substance: CHOLECALCIFEROL
  12. LAMOTRIGINE. [Concomitant]
     Active Substance: LAMOTRIGINE
  13. EPIPEN [Concomitant]
     Active Substance: EPINEPHRINE
  14. PROAIR HFA [Concomitant]
     Active Substance: ALBUTEROL SULFATE
  15. BIOTIN [Concomitant]
     Active Substance: BIOTIN
  16. LYSINE [Concomitant]
     Active Substance: LYSINE
  17. VITAMIN B12 [Concomitant]
     Active Substance: CYANOCOBALAMIN
  18. XYREM [Suspect]
     Active Substance: SODIUM OXYBATE
     Indication: CATAPLEXY
     Dosage: DOSE ADJUSTMENTS
     Route: 048
     Dates: start: 201602, end: 201604
  19. VITAMIN B6 [Concomitant]
     Active Substance: PYRIDOXINE HYDROCHLORIDE
  20. VITAMIN C [Concomitant]
     Active Substance: ASCORBIC ACID
  21. PROBIOTICA [Concomitant]
     Active Substance: PROBIOTICS NOS
  22. AMPICILLIN [Concomitant]
     Active Substance: AMPICILLIN
  23. CYMBALTA [Concomitant]
     Active Substance: DULOXETINE HYDROCHLORIDE
  24. CALCIUM MAGNESIUM ZINC [Concomitant]
     Active Substance: CALCIUM\MAGNESIUM\ZINC
  25. COLLAGEN [Concomitant]
     Active Substance: COLLAGEN
  26. HAIR, SKIN + NAILS [Concomitant]
     Active Substance: MINERALS\VITAMINS
  27. SEASONIQUE [Concomitant]
     Active Substance: ETHINYL ESTRADIOL\LEVONORGESTREL
  28. SINGULAIR [Concomitant]
     Active Substance: MONTELUKAST SODIUM
  29. VYVANSE [Concomitant]
     Active Substance: LISDEXAMFETAMINE DIMESYLATE
  30. DEPLIN [Concomitant]
     Active Substance: LEVOMEFOLATE CALCIUM
  31. MIRALAX [Concomitant]
     Active Substance: POLYETHYLENE GLYCOL 3350
  32. CETIRIZINE HCL [Concomitant]
     Active Substance: CETIRIZINE HYDROCHLORIDE

REACTIONS (9)
  - Insomnia [Unknown]
  - Feeling hot [Not Recovered/Not Resolved]
  - Therapeutic response decreased [Unknown]
  - Anxiety [Unknown]
  - Irritable bowel syndrome [Unknown]
  - Ovarian disorder [Unknown]
  - Gastrooesophageal reflux disease [Unknown]
  - Postural orthostatic tachycardia syndrome [Unknown]
  - Hyperhidrosis [Not Recovered/Not Resolved]

NARRATIVE: CASE EVENT DATE: 2016
